FAERS Safety Report 7498317-X (Version None)
Quarter: 2011Q2

REPORT INFORMATION
  Report Type: 
  Country: None (occurrence: None)
  Receive Date: 20110524
  Receipt Date: 20110120
  Transmission Date: 20111010
  Serious: Yes (Hospitalization, Other)
  Sender: FDA-Public Use
  Company Number: US-BAYER-201034068NA

PATIENT
  Age: 41 Year
  Sex: Female
  Weight: 68.027 kg

DRUGS (5)
  1. YASMIN [Suspect]
     Indication: CONTRACEPTION
  2. ALBUTEROL SULFATE AUTOHALER [Concomitant]
  3. ALLEGRA [Concomitant]
  4. ACIPHEX [Concomitant]
     Indication: GASTRITIS
  5. YASMIN [Suspect]
     Indication: DYSMENORRHOEA
     Dosage: UNK
     Route: 048
     Dates: start: 20040101, end: 20050101

REACTIONS (4)
  - DEEP VEIN THROMBOSIS [None]
  - CHOLELITHIASIS [None]
  - CHOLECYSTITIS CHRONIC [None]
  - CHOLECYSTECTOMY [None]
